FAERS Safety Report 17572733 (Version 1)
Quarter: 2020Q1

REPORT INFORMATION
  Report Type: Spontaneous
  Country: DE (occurrence: DE)
  Receive Date: 20200323
  Receipt Date: 20200323
  Transmission Date: 20200409
  Serious: No
  Sender: FDA-Public Use
  Company Number: DE-EMD SERONO-9151475

PATIENT

DRUGS (1)
  1. MAVENCLAD [Suspect]
     Active Substance: CLADRIBINE
     Indication: MULTIPLE SCLEROSIS
     Dosage: PATIENT HAD FINISHED ALL MAVENCLAD CYCLES.

REACTIONS (2)
  - Pain [Unknown]
  - Headache [Not Recovered/Not Resolved]
